FAERS Safety Report 11791412 (Version 1)
Quarter: 2015Q4

REPORT INFORMATION
  Report Type: Spontaneous
  Country: US (occurrence: None)
  Receive Date: 20151130
  Receipt Date: 20151130
  Transmission Date: 20160305
  Serious: Yes (Hospitalization, Other)
  Sender: FDA-Public Use
  Company Number: None

PATIENT
  Age: 59 Year
  Sex: Male
  Weight: 82.56 kg

DRUGS (3)
  1. INVANZ [Suspect]
     Active Substance: ERTAPENEM SODIUM
     Indication: GANGRENE
     Dosage: 500
     Route: 042
     Dates: start: 20151114, end: 20151123
  2. INVANZ [Suspect]
     Active Substance: ERTAPENEM SODIUM
     Indication: INFECTION
     Dosage: 500
     Route: 042
     Dates: start: 20151114, end: 20151123
  3. INVANZ [Suspect]
     Active Substance: ERTAPENEM SODIUM
     Indication: AMPUTATION
     Dosage: 500
     Route: 042
     Dates: start: 20151114, end: 20151123

REACTIONS (1)
  - Delirium [None]

NARRATIVE: CASE EVENT DATE: 20151113
